FAERS Safety Report 25074268 (Version 1)
Quarter: 2025Q1

REPORT INFORMATION
  Report Type: Spontaneous
  Country: JP (occurrence: JP)
  Receive Date: 20250313
  Receipt Date: 20250313
  Transmission Date: 20250409
  Serious: Yes (Hospitalization)
  Sender: UNITED THERAPEUTICS
  Company Number: JP-UNITED THERAPEUTICS-UNT-2024-015995

PATIENT
  Age: 19 Year
  Sex: Female

DRUGS (2)
  1. TYVASO [Suspect]
     Active Substance: TREPROSTINIL
     Indication: Product used for unknown indication
     Dosage: 18 ?G, QID
     Dates: start: 20240517
  2. TYVASO [Suspect]
     Active Substance: TREPROSTINIL
     Dosage: 30 ?G, TID

REACTIONS (3)
  - Cardiac disorder [Unknown]
  - Urticaria [Unknown]
  - Underdose [Unknown]

NARRATIVE: CASE EVENT DATE: 20240522
